FAERS Safety Report 9099095 (Version 6)
Quarter: 2015Q4

REPORT INFORMATION
  Report Type: Spontaneous
  Country: US (occurrence: US)
  Receive Date: 20130214
  Receipt Date: 20151103
  Transmission Date: 20160305
  Serious: Yes (Disabling, Other)
  Sender: FDA-Public Use
  Company Number: US-009507513-1302USA005159

PATIENT
  Sex: Male
  Weight: 101.59 kg

DRUGS (3)
  1. PROPECIA [Suspect]
     Active Substance: FINASTERIDE
     Indication: ANDROGENETIC ALOPECIA
     Dosage: 1 MG, QD
     Route: 048
     Dates: start: 20050120, end: 20130523
  2. PROPECIA [Suspect]
     Active Substance: FINASTERIDE
     Dosage: 1 MG, BID
     Route: 048
     Dates: start: 20120807, end: 20121222
  3. FINASTERIDE. [Suspect]
     Active Substance: FINASTERIDE
     Dosage: 1 MG, BID
     Route: 048
     Dates: start: 20130428, end: 20141225

REACTIONS (12)
  - Fungal infection [Unknown]
  - Erectile dysfunction [Unknown]
  - Sexual dysfunction [Unknown]
  - Hypogonadism [Unknown]
  - Wrist surgery [Unknown]
  - Libido decreased [Unknown]
  - Cognitive disorder [Unknown]
  - Overdose [Unknown]
  - Asthenia [Unknown]
  - Hearing impaired [Unknown]
  - Limb operation [Unknown]
  - Organic erectile dysfunction [Unknown]

NARRATIVE: CASE EVENT DATE: 20050404
